FAERS Safety Report 5226251-4 (Version None)
Quarter: 2007Q1

REPORT INFORMATION
  Report Type: 
  Country: None (occurrence: None)
  Receive Date: 20070201
  Receipt Date: 20070126
  Transmission Date: 20070707
  Serious: Yes (Life-Threatening)
  Sender: FDA-Public Use
  Company Number: JP-AVENTIS-200710011JP

PATIENT
  Age: 87 Year
  Sex: Female
  Weight: 46 kg

DRUGS (16)
  1. AMARYL [Suspect]
     Indication: DIABETES MELLITUS
     Route: 048
     Dates: start: 20050423, end: 20061228
  2. CLARITHROMYCIN [Suspect]
     Indication: BRONCHITIS
     Route: 048
     Dates: start: 20061225, end: 20061228
  3. LENIMEC [Suspect]
     Indication: HYPERTENSION
     Route: 048
     Dates: start: 20050427
  4. MUCODYNE [Concomitant]
     Indication: BRONCHITIS
     Route: 048
     Dates: start: 20061225, end: 20061229
  5. TULOBUTEN [Concomitant]
     Indication: BRONCHITIS
     Dates: start: 20061225, end: 20061228
  6. FIBLAST [Concomitant]
     Dates: start: 20061201
  7. ENPRAL [Concomitant]
     Indication: REFLUX OESOPHAGITIS
     Route: 048
     Dates: start: 20061125
  8. GASMOTIN [Concomitant]
     Indication: REFLUX OESOPHAGITIS
     Route: 048
     Dates: start: 20061124
  9. MUCOSTA [Concomitant]
     Indication: GASTRITIS
     Route: 048
     Dates: start: 20060902
  10. TICLOPIDINE HCL [Concomitant]
     Route: 048
     Dates: start: 20030530
  11. PLATIBIT [Concomitant]
     Indication: OSTEOPOROSIS
     Route: 048
     Dates: start: 20060530
  12. SENNOSIDE [Concomitant]
     Indication: CONSTIPATION
     Route: 048
     Dates: start: 20060530
  13. LASIX [Concomitant]
     Indication: HYPERTENSION
     Route: 048
     Dates: start: 20050428
  14. ZYLORIC [Concomitant]
     Indication: HYPERURICAEMIA
     Route: 048
     Dates: start: 20050511
  15. ATELEC [Concomitant]
     Indication: HYPERTENSION
     Route: 048
     Dates: start: 20050607
  16. LAXOSELIN [Concomitant]
     Indication: CONSTIPATION
     Route: 048
     Dates: start: 20030530

REACTIONS (2)
  - DRUG INTERACTION [None]
  - HYPOGLYCAEMIC COMA [None]
